FAERS Safety Report 16335260 (Version 1)
Quarter: 2019Q2

REPORT INFORMATION
  Report Type: Spontaneous
  Country: US (occurrence: US)
  Receive Date: 20190413
  Receipt Date: 20190413
  Transmission Date: 20190711
  Serious: Yes (Hospitalization)
  Sender: FDA-Public Use
  Company Number: None

PATIENT
  Age: 60 Year
  Sex: Female
  Weight: 60 kg

DRUGS (1)
  1. NOLVADEX [Suspect]
     Active Substance: TAMOXIFEN CITRATE
     Dates: end: 20180522

REACTIONS (4)
  - Pyrexia [None]
  - Urinary tract infection [None]
  - Enterococcus test positive [None]
  - Disease progression [None]

NARRATIVE: CASE EVENT DATE: 20180522
